FAERS Safety Report 8375327-1 (Version None)
Quarter: 2012Q2

REPORT INFORMATION
  Report Type: 
  Country: None (occurrence: None)
  Receive Date: 20120522
  Receipt Date: 20120508
  Transmission Date: 20120825
  Serious: No
  Sender: FDA-Public Use
  Company Number: US-BIOGENIDEC-2012BI016397

PATIENT
  Age: 31 Year
  Sex: Female

DRUGS (5)
  1. SUMATRIPTAN [Concomitant]
  2. TYSABRI [Suspect]
     Route: 042
     Dates: start: 20110211
  3. AVONEX [Concomitant]
     Indication: MULTIPLE SCLEROSIS
     Route: 030
     Dates: start: 20050819
  4. TYSABRI [Suspect]
     Indication: MULTIPLE SCLEROSIS
     Route: 042
  5. NORTRIPTYLINE HCL [Concomitant]
     Dates: start: 20110101

REACTIONS (8)
  - PRURITUS [None]
  - WEIGHT INCREASED [None]
  - FUNGAL SKIN INFECTION [None]
  - VISUAL IMPAIRMENT [None]
  - HAEMANGIOMA [None]
  - OPTIC ATROPHY [None]
  - VULVOVAGINITIS [None]
  - HEARING IMPAIRED [None]
